FAERS Safety Report 19164144 (Version 1)
Quarter: 2021Q2

REPORT INFORMATION
  Report Type: Spontaneous
  Country: CA (occurrence: CA)
  Receive Date: 20210421
  Receipt Date: 20210421
  Transmission Date: 20210717
  Serious: Yes (Death)
  Sender: FDA-Public Use
  Company Number: CA-ROCHE-2811289

PATIENT
  Age: 43 Year
  Sex: Female

DRUGS (6)
  1. LORAZEPAM. [Concomitant]
     Active Substance: LORAZEPAM
  2. ESCITALOPRAM [Concomitant]
     Active Substance: ESCITALOPRAM OXALATE
  3. KEPPRA [Concomitant]
     Active Substance: LEVETIRACETAM
  4. PANTOPRAZOLE [Concomitant]
     Active Substance: PANTOPRAZOLE
  5. BEVACIZUMAB. [Suspect]
     Active Substance: BEVACIZUMAB
     Indication: GLIOBLASTOMA
     Route: 042
  6. DECADRON [Concomitant]
     Active Substance: DEXAMETHASONE

REACTIONS (15)
  - Lymphopenia [Fatal]
  - Mean platelet volume decreased [Fatal]
  - White blood cell disorder [Fatal]
  - Lymphocyte count decreased [Fatal]
  - Pneumonia [Fatal]
  - Thrombocytopenia [Fatal]
  - Glioblastoma [Fatal]
  - Anisocytosis [Fatal]
  - Blood uric acid decreased [Fatal]
  - Eosinophil count increased [Fatal]
  - Leukopenia [Fatal]
  - Nasopharyngitis [Fatal]
  - Haemolysis [Fatal]
  - Red cell distribution width increased [Fatal]
  - White blood cell count decreased [Fatal]
